FAERS Safety Report 8935072 (Version 1)
Quarter: 2012Q4

REPORT INFORMATION
  Report Type: 
  Country: PH (occurrence: PH)
  Receive Date: 20121129
  Receipt Date: 20121129
  Transmission Date: 20130627
  Serious: Yes (Death, Hospitalization)
  Sender: FDA-Public Use
  Company Number: PH-BAXTER-2012BAX025047

PATIENT
  Sex: Male

DRUGS (2)
  1. DIANEAL PD2 WITH 1.5% DEXTROSE [Suspect]
     Indication: CAPD
     Route: 033
     Dates: start: 20121013
  2. DIANEAL PD2 WITH 4.25% DEXTROSE [Suspect]
     Indication: CAPD
     Route: 033
     Dates: start: 20121013

REACTIONS (4)
  - Cerebrovascular accident [Fatal]
  - Brain herniation [Fatal]
  - Cerebral haemorrhage [Fatal]
  - Loss of consciousness [Unknown]
